FAERS Safety Report 7395221-2 (Version None)
Quarter: 2011Q2

REPORT INFORMATION
  Report Type: 
  Country: None (occurrence: None)
  Receive Date: 20110405
  Receipt Date: 20091120
  Transmission Date: 20111010
  Serious: Yes (Death, Hospitalization, Other)
  Sender: FDA-Public Use
  Company Number: US-BAYER-200941022NA

PATIENT
  Sex: Male
  Weight: 71.8 kg

DRUGS (35)
  1. TRASYLOL [Suspect]
     Dosage: 50 ML, Q1HR
     Route: 042
     Dates: end: 20060920
  2. PLAVIX [Concomitant]
     Indication: PRODUCT USED FOR UNKNOWN INDICATION
     Dosage: UNK
  3. LIPITOR [Concomitant]
     Indication: PRODUCT USED FOR UNKNOWN INDICATION
     Dosage: 20 MG, HS
     Route: 048
  4. HYDRALAZINE HCL [Concomitant]
     Indication: PRODUCT USED FOR UNKNOWN INDICATION
     Dosage: 100 MG, TID
     Route: 048
  5. POTASSIUM CHLORIDE [Concomitant]
     Dosage: 20 MEQ PER PUMP, UNK
     Dates: start: 20060920
  6. COLACE [Concomitant]
     Indication: PRODUCT USED FOR UNKNOWN INDICATION
     Dosage: 100 MG, BID
     Route: 048
  7. HEPARIN SODIUM [Concomitant]
     Indication: PRODUCT USED FOR UNKNOWN INDICATION
     Dosage: 20000 U PER PUMP, UNK
     Dates: start: 20060920
  8. RED BLOOD CELLS [Concomitant]
     Indication: PRODUCT USED FOR UNKNOWN INDICATION
     Dosage: 2 U, UNK
     Dates: start: 20060920
  9. DOPAMINE [Concomitant]
     Indication: PRODUCT USED FOR UNKNOWN INDICATION
     Dosage: UNK
     Route: 041
     Dates: start: 20060929
  10. TRASYLOL [Suspect]
     Indication: CARDIAC OPERATION
     Dosage: 1 ML TEST DOSE, ONCE
     Route: 042
     Dates: start: 20060920
  11. ATENOLOL [Concomitant]
     Indication: PRODUCT USED FOR UNKNOWN INDICATION
  12. LORTAB [Concomitant]
     Indication: PRODUCT USED FOR UNKNOWN INDICATION
  13. FRESH FROZEN PLASMA [Concomitant]
     Indication: PRODUCT USED FOR UNKNOWN INDICATION
     Dosage: 2 U, UNK
     Dates: start: 20060920
  14. PROTAMINE SULFATE [Concomitant]
     Indication: PRODUCT USED FOR UNKNOWN INDICATION
     Dosage: 300 MG PER PUMP, UNK
     Dates: start: 20060920, end: 20060920
  15. CALCIUM CHLORIDE [Concomitant]
     Indication: PRODUCT USED FOR UNKNOWN INDICATION
     Dosage: 1.5 G PER PUMP, UNK
     Dates: start: 20060920
  16. DOBUTAMINE [Concomitant]
     Indication: PRODUCT USED FOR UNKNOWN INDICATION
     Dosage: UNK
     Route: 041
     Dates: start: 20060929
  17. POTASSIUM CHLORIDE [Concomitant]
     Indication: PRODUCT USED FOR UNKNOWN INDICATION
     Dosage: 8 MEQ, QD
     Route: 048
  18. PROCRIT [Concomitant]
     Indication: PRODUCT USED FOR UNKNOWN INDICATION
     Dosage: 40000 U/ML INJECTION, UNK
  19. MILRINONE [Concomitant]
     Indication: PRODUCT USED FOR UNKNOWN INDICATION
     Dosage: 0.5 MCG/KG/MINUTE, UNK
     Route: 042
     Dates: start: 20060920, end: 20060920
  20. MIDAZOLAM HCL [Concomitant]
     Indication: PRODUCT USED FOR UNKNOWN INDICATION
     Dosage: 1-5 MG
     Route: 042
     Dates: start: 20060920
  21. FENTANYL [Concomitant]
     Indication: PRODUCT USED FOR UNKNOWN INDICATION
     Dosage: 250 MCG, UNK
     Route: 042
     Dates: start: 20060920
  22. LACTULOSE [Concomitant]
     Indication: PRODUCT USED FOR UNKNOWN INDICATION
     Dosage: UNK
  23. ANCEF [Concomitant]
     Indication: PRODUCT USED FOR UNKNOWN INDICATION
     Dosage: 2 G, UNK
     Route: 042
     Dates: start: 20060920
  24. LEVOTHYROXINE [Concomitant]
     Indication: PRODUCT USED FOR UNKNOWN INDICATION
     Dosage: 0.05 MG, QD
     Route: 048
  25. FOSRENOL [Concomitant]
     Indication: PRODUCT USED FOR UNKNOWN INDICATION
     Dosage: 1000 MG EACH MEAL, UNK
     Route: 048
  26. ACETYLSALICYLIC ACID SRT [Concomitant]
     Dosage: 325 MG, QD
     Route: 048
  27. CALCIUM CARBONATE [Concomitant]
     Indication: PRODUCT USED FOR UNKNOWN INDICATION
     Dosage: 3000 MG, BID
     Route: 048
  28. TRASYLOL [Suspect]
     Indication: CORONARY ARTERY BYPASS
     Dosage: 200 ML LOADING DOSE, UNK
     Route: 042
  29. ISOSORBIDE MONONITRATE [Concomitant]
     Indication: PRODUCT USED FOR UNKNOWN INDICATION
     Dosage: 20 MG, BID
     Route: 048
  30. METOPROLOL TARTRATE [Concomitant]
     Indication: PRODUCT USED FOR UNKNOWN INDICATION
     Dosage: 100 MG, BID
     Route: 048
  31. PLATELETS [Concomitant]
     Indication: PRODUCT USED FOR UNKNOWN INDICATION
     Dosage: 2 U, UNK
     Dates: start: 20060920
  32. PEPCID [Concomitant]
     Indication: PRODUCT USED FOR UNKNOWN INDICATION
     Dosage: 20 MG PER PUMP, UNK
     Dates: start: 20060920
  33. TEMAZEPAM [Concomitant]
     Indication: PRODUCT USED FOR UNKNOWN INDICATION
     Dosage: 30 MG, HS
     Route: 048
  34. DESFLURANE [Concomitant]
     Indication: PRODUCT USED FOR UNKNOWN INDICATION
     Dosage: 2.1-7.0% INHALATION
     Dates: start: 20060920, end: 20060920
  35. ALBUMIN [ALBUMEN] [Concomitant]
     Indication: PRODUCT USED FOR UNKNOWN INDICATION
     Dosage: 750 ML PER PUMP, UNK
     Dates: start: 20060920

REACTIONS (10)
  - ANXIETY [None]
  - DEATH [None]
  - ANHEDONIA [None]
  - RENAL FAILURE [None]
  - PAIN [None]
  - CEREBROVASCULAR ACCIDENT [None]
  - FEAR [None]
  - UNEVALUABLE EVENT [None]
  - DEPRESSION [None]
  - INJURY [None]
